FAERS Safety Report 19164397 (Version 2)
Quarter: 2021Q2

REPORT INFORMATION
  Report Type: Spontaneous
  Country: JP (occurrence: JP)
  Receive Date: 20210421
  Receipt Date: 20210603
  Transmission Date: 20210717
  Serious: Yes (Hospitalization, Other)
  Sender: FDA-Public Use
  Company Number: JP-SA-2021SA123360

PATIENT
  Sex: Female

DRUGS (2)
  1. ELPLAT [Suspect]
     Active Substance: OXALIPLATIN
     Indication: COLON CANCER STAGE II
     Dosage: UNK, Q3W
     Route: 041
  2. CAPECITABINE. [Concomitant]
     Active Substance: CAPECITABINE
     Indication: COLON CANCER STAGE II
     Dosage: UNK

REACTIONS (8)
  - Hypophagia [Unknown]
  - Hypokalaemia [Unknown]
  - Decreased appetite [Recovering/Resolving]
  - Blood pressure decreased [Recovered/Resolved]
  - Malaise [Recovering/Resolving]
  - Condition aggravated [Recovering/Resolving]
  - Dyspepsia [Unknown]
  - Diarrhoea [Recovering/Resolving]
